FAERS Safety Report 16676026 (Version 2)
Quarter: 2019Q3

REPORT INFORMATION
  Report Type: Spontaneous
  Country: US (occurrence: US)
  Receive Date: 20190807
  Receipt Date: 20190918
  Transmission Date: 20191004
  Serious: No
  Sender: FDA-Public Use
  Company Number: US-ALK-ABELLO A/S-2019AA002381

PATIENT

DRUGS (10)
  1. TAE BULK 312 (ARTEMISIA VULGARIS) [Suspect]
     Active Substance: ARTEMISIA VULGARIS POLLEN
     Indication: PRODUCT USED FOR UNKNOWN INDICATION
  2. STAE BULK 555 (FELIS DOMESTICUS) [Suspect]
     Active Substance: FELIS CATUS HAIR
     Indication: PRODUCT USED FOR UNKNOWN INDICATION
  3. TAE BULK 156 (ULMUS AMERICANA) [Suspect]
     Active Substance: ULMUS AMERICANA POLLEN
     Indication: PRODUCT USED FOR UNKNOWN INDICATION
  4. STAE BULK 504 (DERMATOPHAGOIDES FARINAE) [Suspect]
     Active Substance: DERMATOPHAGOIDES FARINAE
     Indication: PRODUCT USED FOR UNKNOWN INDICATION
  5. TAE BULK 1143 (BETULA NIGRA) [Suspect]
     Active Substance: BETULA NIGRA POLLEN
     Indication: PRODUCT USED FOR UNKNOWN INDICATION
  6. TAE BULK 553 (CANIS LUPUS FAMILIARIS) [Suspect]
     Active Substance: CANIS LUPUS FAMILIARIS SKIN
     Indication: PRODUCT USED FOR UNKNOWN INDICATION
  7. TAE BULK 153 (QUERCUS ALBA) [Suspect]
     Active Substance: QUERCUS ALBA POLLEN
     Indication: PRODUCT USED FOR UNKNOWN INDICATION
  8. STAE BULK 225 (PHLEUM PRATENSE) [Suspect]
     Active Substance: PHLEUM PRATENSE POLLEN
     Indication: PRODUCT USED FOR UNKNOWN INDICATION
  9. TAE BULK 402 (ALTERNARIA ALTERNATA) [Suspect]
     Active Substance: ALTERNARIA ALTERNATA
     Indication: PRODUCT USED FOR UNKNOWN INDICATION
  10. STAE BULK 302 AMBROSIA ARTEMISIIFOLIA [Suspect]
     Active Substance: AMBROSIA ARTEMISIIFOLIA POLLEN
     Indication: PRODUCT USED FOR UNKNOWN INDICATION

REACTIONS (1)
  - Contusion [Unknown]
